FAERS Safety Report 11767394 (Version 1)
Quarter: 2015Q4

REPORT INFORMATION
  Report Type: Spontaneous
  Country: US (occurrence: None)
  Receive Date: 20151120
  Receipt Date: 20151120
  Transmission Date: 20160304
  Serious: Yes (Life-Threatening)
  Sender: FDA-Public Use
  Company Number: None

PATIENT
  Age: 53 Year
  Sex: Male
  Weight: 95.4 kg

DRUGS (13)
  1. DILAUDID [Concomitant]
     Active Substance: HYDROMORPHONE HYDROCHLORIDE
  2. HARVONI [Suspect]
     Active Substance: LEDIPASVIR\SOFOSBUVIR
     Indication: HEPATITIS C
     Route: 048
  3. ATENOLOL. [Concomitant]
     Active Substance: ATENOLOL
  4. LYRICA [Concomitant]
     Active Substance: PREGABALIN
  5. NOVOLOG [Concomitant]
     Active Substance: INSULIN ASPART
  6. IRON [Concomitant]
     Active Substance: IRON
  7. MILK THISTLE [Concomitant]
     Active Substance: MILK THISTLE
  8. MORPHINE [Concomitant]
     Active Substance: MORPHINE
  9. COMBIGEN [Concomitant]
  10. ALPRAZOLAM. [Concomitant]
     Active Substance: ALPRAZOLAM
  11. PLAVIX [Concomitant]
     Active Substance: CLOPIDOGREL BISULFATE
  12. LANTUS [Concomitant]
     Active Substance: INSULIN GLARGINE
  13. LUMIGEN [Concomitant]

REACTIONS (2)
  - Refusal of treatment by patient [None]
  - Hypoglycaemia [None]
